FAERS Safety Report 7496042-2 (Version None)
Quarter: 2011Q2

REPORT INFORMATION
  Report Type: 
  Country: None (occurrence: None)
  Receive Date: 20110523
  Receipt Date: 20110504
  Transmission Date: 20111010
  Serious: No
  Sender: FDA-Public Use
  Company Number: US-B.I. PHARMACEUTICALS,INC./RIDGEFIELD-2011-BP-07591BP

PATIENT
  Sex: Female

DRUGS (6)
  1. OMEPRAZOLE [Concomitant]
  2. SIMVASTATIN [Concomitant]
  3. SERTRALINE HYDROCHLORIDE [Concomitant]
  4. PRADAXA [Suspect]
     Indication: THROMBOSIS
  5. SYNTHROID [Concomitant]
  6. METOPROLOL SUCCINATE [Concomitant]

REACTIONS (1)
  - NAIL DISORDER [None]
